FAERS Safety Report 10230107 (Version 1)
Quarter: 2014Q2

REPORT INFORMATION
  Report Type: Spontaneous
  Country: GB (occurrence: GB)
  Receive Date: 20140611
  Receipt Date: 20140611
  Transmission Date: 20141212
  Serious: Yes (Other)
  Sender: FDA-Public Use
  Company Number: GB-MYLANLABS-2014S1012471

PATIENT
  Age: 42 Year
  Sex: Male

DRUGS (29)
  1. CARBAMAZEPINE [Suspect]
     Indication: CONVULSION
     Dosage: 100 MG, BID
  2. CARBAMAZEPINE [Suspect]
     Indication: CONVULSION
     Dosage: 300 MG, BID
  3. CARBAMAZEPINE [Suspect]
     Indication: CONVULSION
     Dosage: 300 MG, UNK
  4. CARBAMAZEPINE [Suspect]
     Indication: CONVULSION
     Dosage: 200 MG, BID
     Dates: start: 1988
  5. CARBAMAZEPINE [Suspect]
     Indication: CONVULSION
     Dosage: 200 MG, BID
  6. LAMOTRIGINE [Suspect]
     Dosage: 500 MG/24 HOURS
  7. LAMOTRIGINE [Suspect]
     Dosage: 200 MG, UNK
  8. LAMOTRIGINE [Suspect]
     Dosage: 300 MG/24 HOURS
  9. LAMOTRIGINE [Suspect]
     Dosage: 150 MG, BID
  10. LAMOTRIGINE [Suspect]
     Dosage: UNK UKN, UNK
  11. TOPIRAMATE [Suspect]
     Dosage: 25 MG, QOD
  12. LAMICTAL [Suspect]
     Indication: EPILEPSY
     Dosage: UNK UKN, UNK
  13. LAMICTAL [Suspect]
     Indication: EPILEPSY
     Dosage: 225 MG (TAKEN DOWN ANOTHER 25 MG FROM 250 MG), UNK
  14. LAMICTAL [Suspect]
     Indication: EPILEPSY
     Dosage: REDUCED DOSE BY 25 MG, UNK
  15. LAMICTAL [Suspect]
     Indication: EPILEPSY
     Dosage: 400 MG, UNK
     Dates: start: 200309
  16. LAMICTAL [Suspect]
     Indication: EPILEPSY
     Dosage: 300 MG/DAY
  17. LAMICTAL [Suspect]
     Indication: EPILEPSY
     Dosage: REDUCED BY ANOTHER 250 MG (250MG), UNK
  18. MIDAZOLAM [Suspect]
     Dosage: UNK UKN, UNK
     Route: 002
  19. TEGRETOL [Suspect]
     Indication: EPILEPSY
     Dosage: 300 MG, BID (300MG IN THE MORNING AND 300 MG AT NIGHT)
     Dates: start: 20140206
  20. TEGRETOL [Suspect]
     Indication: EPILEPSY
     Dosage: 300 MG, BID (300MG IN THE MORNING AND 300 MG AT NIGHT)
     Dates: start: 1989, end: 20140101
  21. TEGRETOL [Suspect]
     Indication: EPILEPSY
     Dosage: 400 MG, UNK
  22. TEGRETOL [Suspect]
     Indication: EPILEPSY
     Dosage: 200 MG, UNK
  23. TEGRETOL [Suspect]
     Indication: EPILEPSY
     Dosage: 500 MG, UNK
  24. TEGRETOL [Suspect]
     Indication: EPILEPSY
     Dosage: 600 MG, UNK
  25. TEGRETOL [Suspect]
     Indication: EPILEPSY
     Dosage: 1000 MG, UNK
     Dates: start: 200309, end: 20120511
  26. VALPROIC ACID [Suspect]
     Dosage: 400 MG/24 HOURS
  27. VALPROIC ACID [Suspect]
     Dosage: UNK UKN, UNK
  28. ADCAL D3 [Concomitant]
     Dosage: UNK UKN, UNK
  29. VITAMIN D [Concomitant]
     Indication: BONE DISORDER
     Dosage: UNK UKN, UNK

REACTIONS (44)
  - Aggression [Unknown]
  - Agitation [Unknown]
  - Anxiety [Unknown]
  - Hallucination [Unknown]
  - Dyskinesia [Not Recovered/Not Resolved]
  - Balance disorder [Unknown]
  - Musculoskeletal stiffness [Unknown]
  - Drug level increased [Unknown]
  - Catatonia [Unknown]
  - Complex partial seizures [Unknown]
  - Insomnia [Unknown]
  - Diarrhoea [Unknown]
  - Distractibility [Unknown]
  - Emotional disorder [Unknown]
  - Cerebral ventricle dilatation [Unknown]
  - Euphoric mood [Unknown]
  - Convulsion [Unknown]
  - Epilepsy [Unknown]
  - Fear [Unknown]
  - Frustration [Unknown]
  - Gastrointestinal disorder [Unknown]
  - Gait disturbance [Unknown]
  - Psychotic disorder [Unknown]
  - Tonic clonic movements [Not Recovered/Not Resolved]
  - Petit mal epilepsy [Unknown]
  - Depressed level of consciousness [Unknown]
  - Bone density decreased [Unknown]
  - Microcephaly [Unknown]
  - Abnormal behaviour [Unknown]
  - Irritability [Unknown]
  - Emotional distress [Unknown]
  - Decreased appetite [Unknown]
  - Toxicity to various agents [Recovered/Resolved]
  - Malaise [Unknown]
  - Depressed mood [Unknown]
  - Staring [Unknown]
  - Hyperexplexia [Unknown]
  - Stress [Unknown]
  - Suspiciousness [Unknown]
  - Fatigue [Unknown]
  - Generalised tonic-clonic seizure [Unknown]
  - Tremor [Unknown]
  - Upper respiratory tract infection [Unknown]
  - Ataxia [Not Recovered/Not Resolved]
